FAERS Safety Report 10032356 (Version 1)
Quarter: 2014Q1

REPORT INFORMATION
  Report Type: Spontaneous
  Country: FR (occurrence: FR)
  Receive Date: 20140324
  Receipt Date: 20140324
  Transmission Date: 20141002
  Serious: Yes (Hospitalization)
  Sender: FDA-Public Use
  Company Number: FR-SA-2014SA030872

PATIENT
  Age: 58 Year
  Sex: Male

DRUGS (6)
  1. HEPARIN SODIUM [Suspect]
     Indication: PRODUCT USED FOR UNKNOWN INDICATION
     Route: 042
     Dates: start: 20131208, end: 20131208
  2. LOVENOX [Suspect]
     Indication: PROPHYLAXIS
     Route: 058
     Dates: start: 20131208, end: 20131215
  3. NIMBEX [Concomitant]
     Indication: SEDATION
     Route: 042
     Dates: start: 20131208, end: 20131215
  4. TYGACIL [Concomitant]
     Route: 042
     Dates: start: 20131211, end: 20131214
  5. CEFTRIAXONE PANPHARMA [Concomitant]
     Indication: PROPHYLAXIS
     Dates: start: 20131207, end: 20131213
  6. MIDAZOLAM MYLAN [Concomitant]
     Indication: SEDATION
     Route: 042
     Dates: start: 20131208, end: 20131215

REACTIONS (5)
  - Renal infarct [Recovered/Resolved]
  - Creatinine renal clearance decreased [Recovered/Resolved]
  - Heparin-induced thrombocytopenia [Recovered/Resolved]
  - Deep vein thrombosis [Recovering/Resolving]
  - Pulmonary embolism [Recovering/Resolving]
